FAERS Safety Report 10235530 (Version 3)
Quarter: 2014Q3

REPORT INFORMATION
  Report Type: Spontaneous
  Country: IT (occurrence: None)
  Receive Date: 20140611
  Receipt Date: 20140707
  Transmission Date: 20150326
  Serious: Yes (Other)
  Sender: FDA-Public Use
  Company Number: 2375575

PATIENT
  Age: 57 Year
  Sex: Female

DRUGS (3)
  1. CISPLATINO TEVA [Concomitant]
     Active Substance: CISPLATIN
  2. PACLITAXEL. [Suspect]
     Active Substance: PACLITAXEL
     Indication: CERVIX CARCINOMA STAGE III
     Dosage: 30 MG/M 2 MILLIGRAM/SQ.  METER (CYCLICAL)
     Route: 042
     Dates: start: 20140429, end: 20140521
  3. THERAPEUTIC PHARMACEUTICALS [Concomitant]

REACTIONS (5)
  - Blood pressure increased [None]
  - Rash [None]
  - Dyspnoea [None]
  - Vomiting [None]
  - Hyperhidrosis [None]

NARRATIVE: CASE EVENT DATE: 20140521
